FAERS Safety Report 23584727 (Version 1)
Quarter: 2024Q1

REPORT INFORMATION
  Report Type: Spontaneous
  Country: FR (occurrence: FR)
  Receive Date: 20240301
  Receipt Date: 20240301
  Transmission Date: 20240410
  Serious: Yes (Hospitalization, Other)
  Sender: FDA-Public Use
  Company Number: FR-EMA-DD-20180820-ajevhp-123246

PATIENT
  Sex: Female

DRUGS (14)
  1. AZACITIDINE [Suspect]
     Active Substance: AZACITIDINE
     Indication: Myelodysplastic syndrome
     Dosage: 75 MG/M2
     Route: 058
     Dates: start: 20170117, end: 20170123
  2. AZACITIDINE [Suspect]
     Active Substance: AZACITIDINE
     Dosage: 75 MG/M2
     Route: 058
     Dates: start: 20170213
  3. AZACITIDINE [Suspect]
     Active Substance: AZACITIDINE
     Dosage: 75 MG/M2
     Route: 058
     Dates: start: 20170313
  4. AZACITIDINE [Suspect]
     Active Substance: AZACITIDINE
     Dosage: 75 MG/M2
     Route: 058
     Dates: start: 20170410, end: 20170419
  5. AZACITIDINE [Suspect]
     Active Substance: AZACITIDINE
     Dosage: 100 MILLIGRAM, ONCE A DAY
     Route: 058
     Dates: start: 20170509
  6. SONIDEGIB PHOSPHATE [Suspect]
     Active Substance: SONIDEGIB PHOSPHATE
     Indication: Myelodysplastic syndrome
     Dosage: 400 MILLIGRAM
     Route: 048
     Dates: start: 20170117, end: 20170424
  7. SONIDEGIB PHOSPHATE [Suspect]
     Active Substance: SONIDEGIB PHOSPHATE
     Dosage: 200 MILLIGRAM, ONCE A DAY
     Route: 048
     Dates: start: 20170510
  8. LEUCOVORIN CALCIUM [Concomitant]
     Active Substance: LEUCOVORIN CALCIUM
     Indication: Product used for unknown indication
     Dosage: 25 MILLIGRAM
     Route: 048
  9. SULFAMETHOXAZOLE AND TRIMETHOPRIM [Concomitant]
     Active Substance: SULFAMETHOXAZOLE\TRIMETHOPRIM
     Indication: Castleman^s disease
     Dosage: 400 MILLIGRAM
     Route: 048
  10. LYRICA [Concomitant]
     Active Substance: PREGABALIN
     Indication: Pain in extremity
     Dosage: 25 MILLIGRAM
     Route: 048
  11. VALACYCLOVIR HYDROCHLORIDE [Concomitant]
     Active Substance: VALACYCLOVIR HYDROCHLORIDE
     Indication: Castleman^s disease
     Dosage: 500 MILLIGRAM
     Route: 048
  12. NOXAFIL [Concomitant]
     Active Substance: POSACONAZOLE
     Indication: Prophylaxis
     Dosage: 300 MILLIGRAM
     Route: 048
  13. PREDNISOLONE [Concomitant]
     Active Substance: PREDNISOLONE
     Indication: Product used for unknown indication
     Dosage: 20 MILLIGRAM
     Route: 048
  14. ZOPICLONE [Concomitant]
     Active Substance: ZOPICLONE
     Indication: Depression
     Dosage: 7.5 MILLIGRAM
     Route: 048

REACTIONS (3)
  - Febrile neutropenia [Not Recovered/Not Resolved]
  - Device related infection [Recovered/Resolved]
  - Urinary tract infection [Recovered/Resolved]

NARRATIVE: CASE EVENT DATE: 20170425
